FAERS Safety Report 17472248 (Version 1)
Quarter: 2020Q1

REPORT INFORMATION
  Report Type: Spontaneous
  Country: US (occurrence: US)
  Receive Date: 20200217
  Receipt Date: 20200217
  Transmission Date: 20200409
  Serious: Yes (Hospitalization)
  Sender: FDA-Public Use
  Company Number: None

PATIENT
  Age: 25 Month
  Sex: Female

DRUGS (1)
  1. PULMOZYME [Suspect]
     Active Substance: DORNASE ALFA
     Indication: DYSPHAGIA
     Dosage: ?          OTHER DOSE:1 VIAL;?
     Route: 055
     Dates: start: 20190525

REACTIONS (1)
  - Pneumonia [None]

NARRATIVE: CASE EVENT DATE: 202001
